FAERS Safety Report 6859039-9 (Version None)
Quarter: 2010Q3

REPORT INFORMATION
  Report Type: 
  Country: None (occurrence: None)
  Receive Date: 20100719
  Receipt Date: 20080219
  Transmission Date: 20110219
  Serious: Yes (Other)
  Sender: FDA-Public Use
  Company Number: US-PFIZER INC-2008016606

PATIENT
  Sex: Female
  Weight: 63.5 kg

DRUGS (4)
  1. CHANTIX [Suspect]
     Indication: SMOKING CESSATION THERAPY
     Dates: start: 20080106
  2. SIMVASTATIN [Concomitant]
     Indication: CEREBROVASCULAR ACCIDENT
  3. LISINOPRIL [Concomitant]
     Indication: CEREBROVASCULAR ACCIDENT
  4. ASPIRIN [Concomitant]

REACTIONS (3)
  - ABNORMAL DREAMS [None]
  - FATIGUE [None]
  - SLEEP DISORDER [None]
